FAERS Safety Report 5271238-9 (Version None)
Quarter: 2007Q1

REPORT INFORMATION
  Report Type: 
  Country: None (occurrence: None)
  Receive Date: 20061214
  Receipt Date: 20051117
  Transmission Date: 20070707
  Serious: Yes (Other)
  Sender: FDA-Public Use
  Company Number: 2005118977

PATIENT
  Age: 37 Year
  Sex: Female
  Weight: 58.9676 kg

DRUGS (8)
  1. BEXTRA [Suspect]
     Indication: ARTHROPATHY
     Dosage: 10 MG (10 MG,1 IN 1 D),ORAL
     Route: 048
     Dates: start: 20020515
  2. BEXTRA [Suspect]
     Indication: FIBROMYALGIA
     Dosage: 10 MG (10 MG,1 IN 1 D),ORAL
     Route: 048
     Dates: start: 20020515
  3. MOBIC [Suspect]
     Indication: ARTHROPATHY
     Dates: start: 20050401, end: 20050501
  4. MOBIC [Suspect]
     Indication: FIBROMYALGIA
     Dates: start: 20050401, end: 20050501
  5. ZANAFLEX [Concomitant]
  6. ZYRTEC [Concomitant]
  7. LEXAPRO [Concomitant]
  8. MOBIC [Concomitant]

REACTIONS (8)
  - ARTHRALGIA [None]
  - BLOOD TRIGLYCERIDES INCREASED [None]
  - CHEST PAIN [None]
  - COUGH [None]
  - DYSPHONIA [None]
  - GASTROOESOPHAGEAL REFLUX DISEASE [None]
  - PAIN [None]
  - PEPTIC ULCER [None]
